FAERS Safety Report 5468041-3 (Version None)
Quarter: 2007Q3

REPORT INFORMATION
  Report Type: 
  Country: None (occurrence: None)
  Receive Date: 20070926
  Receipt Date: 20070918
  Transmission Date: 20080115
  Serious: Yes (Hospitalization)
  Sender: FDA-Public Use
  Company Number: AT-JNJFOC-20070903562

PATIENT
  Age: 58 Year
  Sex: Male
  Weight: 96 kg

DRUGS (7)
  1. INFLIXIMAB [Suspect]
     Indication: PSORIATIC ARTHROPATHY
     Route: 042
  2. ARAVA [Suspect]
     Indication: PSORIATIC ARTHROPATHY
     Route: 048
  3. RAMIPRIL HCT [Concomitant]
     Indication: HYPERTENSION
     Route: 048
  4. PANTOPRAZOLE SODIUM [Concomitant]
     Indication: GASTRITIS
     Route: 048
  5. DEFLAMAT [Concomitant]
     Indication: PSORIATIC ARTHROPATHY
     Route: 048
  6. KOMBI-KALZ [Concomitant]
     Indication: OSTEOPOROSIS
     Route: 048
  7. FOSAMAX [Concomitant]
     Indication: OSTEOPOROSIS
     Route: 048

REACTIONS (2)
  - PERICARDITIS [None]
  - PULMONARY EMBOLISM [None]
